FAERS Safety Report 13430333 (Version 1)
Quarter: 2017Q2

REPORT INFORMATION
  Report Type: Report from Study
  Country: FR (occurrence: FR)
  Receive Date: 20170412
  Receipt Date: 20170412
  Transmission Date: 20170912
  Serious: Yes (Hospitalization, Other)
  Sender: FDA-Public Use
  Company Number: FR-JNJFOC-20160614843

PATIENT
  Age: 61 Year
  Sex: Male
  Weight: 132 kg

DRUGS (13)
  1. LANTUS [Concomitant]
     Route: 065
  2. ESOMEPRAZOLE [Concomitant]
     Active Substance: ESOMEPRAZOLE
     Route: 065
  3. PLACEBO [Suspect]
     Route: 048
  4. PYOSTACINE [Concomitant]
     Active Substance: PRISTINAMYCIN
     Dosage: DOSE 500; 2 TABS-0-2 TABS
     Route: 065
  5. LANTUS [Concomitant]
     Dosage: DOSE DECREASED.
     Route: 065
  6. TERBINAFINE. [Concomitant]
     Active Substance: TERBINAFINE
     Route: 065
  7. FLUVERMAL [Concomitant]
     Route: 065
  8. COAPROVEL [Concomitant]
     Active Substance: HYDROCHLOROTHIAZIDE\IRBESARTAN
     Dosage: 300/25 MG
     Route: 065
  9. ATARAX [Concomitant]
     Active Substance: HYDROXYZINE HYDROCHLORIDE
     Dosage: DOSE=25
     Route: 065
  10. NAFTIDROFURYL [Concomitant]
     Active Substance: NAFRONYL
     Dosage: DOSE=200
     Route: 065
  11. METFORMIN [Concomitant]
     Route: 065
  12. TAHOR [Concomitant]
     Active Substance: ATORVASTATIN CALCIUM
     Route: 065
  13. APIDRA [Concomitant]
     Active Substance: INSULIN GLULISINE
     Dosage: 22-22-22 IU
     Route: 065

REACTIONS (1)
  - Hyperglycaemia [Recovered/Resolved]

NARRATIVE: CASE EVENT DATE: 20160606
